FAERS Safety Report 6850838-6 (Version None)
Quarter: 2010Q3

REPORT INFORMATION
  Report Type: 
  Country: None (occurrence: None)
  Receive Date: 20100716
  Receipt Date: 20071023
  Transmission Date: 20110219
  Serious: No
  Sender: FDA-Public Use
  Company Number: US-PFIZER INC-2007090148

PATIENT
  Sex: Female
  Weight: 47.3 kg

DRUGS (2)
  1. CHANTIX [Suspect]
     Indication: SMOKING CESSATION THERAPY
     Route: 048
     Dates: start: 20071020, end: 20071023
  2. ALPRAZOLAM [Concomitant]
     Indication: NERVOUS SYSTEM DISORDER

REACTIONS (5)
  - ASTHENIA [None]
  - DIZZINESS [None]
  - HEADACHE [None]
  - PRESYNCOPE [None]
  - SOMNOLENCE [None]
